FAERS Safety Report 4506797-4 (Version None)
Quarter: 2004Q4

REPORT INFORMATION
  Report Type: 
  Country: None (occurrence: None)
  Receive Date: 20041122
  Receipt Date: 20040927
  Transmission Date: 20050328
  Serious: Yes (Other)
  Sender: FDA-Public Use
  Company Number: CA-GLAXOSMITHKLINE-A0528265A

PATIENT
  Age: 24 Year
  Sex: Female
  Weight: 57.7 kg

DRUGS (1)
  1. ZYBAN [Suspect]
     Dosage: 150MG SEE DOSAGE TEXT
     Route: 048
     Dates: start: 20040922

REACTIONS (8)
  - AGGRESSION [None]
  - ANGER [None]
  - ANXIETY [None]
  - DYSPEPSIA [None]
  - INSOMNIA [None]
  - IRRITABILITY [None]
  - MOOD SWINGS [None]
  - STOMACH DISCOMFORT [None]
